FAERS Safety Report 18442641 (Version 1)
Quarter: 2020Q4

REPORT INFORMATION
  Report Type: Spontaneous
  Country: GB (occurrence: GB)
  Receive Date: 20201029
  Receipt Date: 20201029
  Transmission Date: 20210114
  Serious: Yes (Other)
  Sender: FDA-Public Use
  Company Number: GB-MYLANLABS-2020M1090174

PATIENT
  Age: 74 Year
  Sex: Male
  Weight: 77 kg

DRUGS (9)
  1. RILUZOLE. [Suspect]
     Active Substance: RILUZOLE
     Indication: MOTOR NEURONE DISEASE
     Dosage: 50 MILLIGRAM
     Dates: start: 20200928
  2. OMEPRAZOLE. [Concomitant]
     Active Substance: OMEPRAZOLE
     Dosage: 1 DOSAGE FORM, QD
     Dates: start: 20200402
  3. TRIMETHOPRIM. [Concomitant]
     Active Substance: TRIMETHOPRIM
     Dosage: 2 DOSAGE FORM, QD
     Dates: start: 20200724, end: 20200731
  4. QVAR [Concomitant]
     Active Substance: BECLOMETHASONE DIPROPIONATE
     Dosage: 4 DOSAGE FORM, QD
     Route: 055
     Dates: start: 20191028
  5. AVAMYS [Concomitant]
     Active Substance: FLUTICASONE FUROATE
     Dosage: 1 DOSAGE FORM, QD
     Dates: start: 20190821
  6. SODIUM ALGINATE [Concomitant]
     Active Substance: SODIUM ALGINATE
     Dosage: 5ML - 10ML 4 TIMES/DAY AFTER MEALS AND BEFORE BED
     Dates: start: 20200624
  7. NITROFURANTOIN. [Concomitant]
     Active Substance: NITROFURANTOIN
     Dosage: 4 DOSAGE FORM, QD
     Dates: start: 20200731, end: 20200807
  8. DOCUSATE SODIUM. [Concomitant]
     Active Substance: DOCUSATE SODIUM
     Dosage: 30 MILLILITER, QD
     Dates: start: 20200624
  9. MACROGOL [Concomitant]
     Active Substance: POLYETHYLENE GLYCOLS
     Dosage: 1 DOSAGE FORM, QD V
     Dates: start: 20200624

REACTIONS (1)
  - Rash morbilliform [Unknown]
